FAERS Safety Report 7467865-0 (Version None)
Quarter: 2011Q2

REPORT INFORMATION
  Report Type: 
  Country: None (occurrence: None)
  Receive Date: 20110509
  Receipt Date: 20110207
  Transmission Date: 20111010
  Serious: Yes (Hospitalization)
  Sender: FDA-Public Use
  Company Number: US-ALEXION-A201100045

PATIENT
  Sex: Female

DRUGS (8)
  1. SOLIRIS [Suspect]
     Dosage: 900 MG, Q2W
     Route: 042
     Dates: start: 20090407
  2. CENTRUM                            /00554501/ [Concomitant]
     Indication: SUPPLEMENTATION THERAPY
     Dosage: UNK
     Route: 048
  3. TRANXENE [Concomitant]
     Indication: ANXIETY
     Dosage: 7.5 MG, TID PRN
     Route: 048
  4. SOLIRIS [Suspect]
     Indication: PAROXYSMAL NOCTURNAL HAEMOGLOBINURIA
     Dosage: 600 MG, QWX4
     Route: 042
     Dates: start: 20090310, end: 20090301
  5. LIPITOR [Concomitant]
     Indication: BLOOD CHOLESTEROL INCREASED
     Dosage: 40 MG, QD
     Route: 048
  6. LEXAPRO [Suspect]
     Indication: DEPRESSION
     Dosage: UNK
     Route: 048
  7. FOLIC ACID [Concomitant]
     Indication: ANAEMIA
     Dosage: 1 MG, QD
     Route: 048
  8. ARIMIDEX [Concomitant]
     Indication: BREAST CANCER
     Dosage: 1 MG, QD
     Route: 048

REACTIONS (5)
  - ASTHENIA [None]
  - ANAEMIA [None]
  - RECTAL HAEMORRHAGE [None]
  - HAEMORRHOIDS [None]
  - TINNITUS [None]
